FAERS Safety Report 20868864 (Version 2)
Quarter: 2022Q3

REPORT INFORMATION
  Report Type: Spontaneous
  Country: US (occurrence: US)
  Receive Date: 20220524
  Receipt Date: 20220708
  Transmission Date: 20221026
  Serious: No
  Sender: FDA-Public Use
  Company Number: US-Vifor (International) Inc.-VIT-2022-02878

PATIENT
  Sex: Male

DRUGS (2)
  1. VELTASSA [Suspect]
     Active Substance: PATIROMER
     Indication: Blood potassium abnormal
     Dosage: NOT TAKING AS MUCH AS SHOULD
     Route: 048
     Dates: start: 2022
  2. METFORMIN [Concomitant]
     Active Substance: METFORMIN HYDROCHLORIDE
     Dates: start: 202204

REACTIONS (5)
  - Gastrointestinal disorder [Unknown]
  - Feeling abnormal [Unknown]
  - Dysgeusia [Unknown]
  - Diarrhoea [Unknown]
  - Constipation [Not Recovered/Not Resolved]

NARRATIVE: CASE EVENT DATE: 20220101
